FAERS Safety Report 14176912 (Version 1)
Quarter: 2017Q4

REPORT INFORMATION
  Report Type: Spontaneous
  Country: US (occurrence: US)
  Receive Date: 20171110
  Receipt Date: 20171110
  Transmission Date: 20180321
  Serious: Yes (Other)
  Sender: FDA-Public Use
  Company Number: US-ASTRAZENECA-2017SF12031

PATIENT
  Age: 69 Year
  Sex: Male
  Weight: 101.7 kg

DRUGS (14)
  1. FARXIGA [Suspect]
     Active Substance: DAPAGLIFLOZIN PROPANEDIOL
     Indication: TYPE 2 DIABETES MELLITUS
     Route: 048
     Dates: start: 20170731, end: 20170809
  2. CINACALCET [Concomitant]
     Active Substance: CINACALCET
  3. LISINOPRIL. [Concomitant]
     Active Substance: LISINOPRIL
  4. FLUTICASONE. [Concomitant]
     Active Substance: FLUTICASONE
     Dosage: NASAL SPRAY
  5. CYCLOSPORINE. [Concomitant]
     Active Substance: CYCLOSPORINE
  6. METRONIDAZOLE. [Concomitant]
     Active Substance: METRONIDAZOLE
  7. SODIUM BICARBONATE. [Concomitant]
     Active Substance: SODIUM BICARBONATE
  8. OMEPRAZOLE. [Concomitant]
     Active Substance: OMEPRAZOLE
  9. JANUVIA [Concomitant]
     Active Substance: SITAGLIPTIN PHOSPHATE
  10. ASPIRIN. [Concomitant]
     Active Substance: ASPIRIN
  11. LOVAZA [Concomitant]
     Active Substance: OMEGA-3-ACID ETHYL ESTERS
  12. ALLOPURINOL. [Concomitant]
     Active Substance: ALLOPURINOL
  13. SINGULAIR [Concomitant]
     Active Substance: MONTELUKAST SODIUM
  14. LOPERAMIDE [Concomitant]
     Active Substance: LOPERAMIDE

REACTIONS (1)
  - Acute kidney injury [Recovering/Resolving]

NARRATIVE: CASE EVENT DATE: 20170810
